FAERS Safety Report 8847723 (Version 1)
Quarter: 2012Q4

REPORT INFORMATION
  Report Type: 
  Country: GB (occurrence: GB)
  Receive Date: 20121018
  Receipt Date: 20121018
  Transmission Date: 20130627
  Serious: Yes (Other)
  Sender: FDA-Public Use
  Company Number: GB-TEVA-365004ISR

PATIENT
  Age: 65 Year
  Sex: Female

DRUGS (1)
  1. CITALOPRAM [Suspect]
     Dosage: Abruptly stopped

REACTIONS (3)
  - Catatonia [Recovering/Resolving]
  - Paralysis [Recovering/Resolving]
  - Withdrawal syndrome [Unknown]
